FAERS Safety Report 8237988-7 (Version None)
Quarter: 2012Q1

REPORT INFORMATION
  Report Type: 
  Country: None (occurrence: None)
  Receive Date: 20120327
  Receipt Date: 20120323
  Transmission Date: 20120608
  Serious: Yes (Hospitalization)
  Sender: FDA-Public Use
  Company Number: SG-MERCK-1203USA02859

PATIENT
  Age: 46 Year
  Sex: Female

DRUGS (1)
  1. HYZAAR [Suspect]
     Route: 048

REACTIONS (6)
  - DYSPNOEA [None]
  - FEAR [None]
  - CHEST DISCOMFORT [None]
  - PALPITATIONS [None]
  - ANXIETY [None]
  - CONVULSION [None]
